FAERS Safety Report 15660687 (Version 2)
Quarter: 2019Q4

REPORT INFORMATION
  Report Type: Spontaneous
  Country: IN (occurrence: IN)
  Receive Date: 20181127
  Receipt Date: 20191003
  Transmission Date: 20200122
  Serious: Yes (Death, Other)
  Sender: FDA-Public Use
  Company Number: IN-PFIZER INC-2016536223

PATIENT
  Age: 34 Year
  Sex: Female

DRUGS (7)
  1. AROMASIN [Suspect]
     Active Substance: EXEMESTANE
     Indication: BREAST CANCER METASTATIC
     Dosage: 25 MG, 1X/DAY
  2. PALBACE [Suspect]
     Active Substance: PALBOCICLIB
     Dosage: 125 MG, CYCLIC (DAILY AT ? 3WKS ON 1 WK OFF)
     Route: 048
     Dates: start: 20161122
  3. LETROZOLE. [Concomitant]
     Active Substance: LETROZOLE
     Indication: BREAST CANCER METASTATIC
     Dosage: 2.5 MG, 1X/DAY
     Route: 048
     Dates: start: 20161101
  4. AFINITOR [Concomitant]
     Active Substance: EVEROLIMUS
     Dosage: 5 MG, 1X/DAY
  5. PALBACE [Suspect]
     Active Substance: PALBOCICLIB
     Indication: BREAST CANCER METASTATIC
     Dosage: 125 MG, CYCLIC (DAILY AT ? 3WKS ON 1 WK OFF)
     Route: 048
     Dates: start: 20161101
  6. XGEVA [Concomitant]
     Active Substance: DENOSUMAB
     Dosage: 120 MG, MONTHLY (ONCE)
     Route: 058
  7. ZOLADEX [Concomitant]
     Active Substance: GOSERELIN ACETATE
     Dosage: 10.8 MG, EVERY 3 MONTHS
     Route: 030

REACTIONS (4)
  - Death [Fatal]
  - Alopecia [Not Recovered/Not Resolved]
  - Disease progression [Unknown]
  - Nasopharyngitis [Recovered/Resolved]

NARRATIVE: CASE EVENT DATE: 20161109
